FAERS Safety Report 11110646 (Version 1)
Quarter: 2015Q2

REPORT INFORMATION
  Report Type: Spontaneous
  Country: TR (occurrence: TR)
  Receive Date: 20150513
  Receipt Date: 20150513
  Transmission Date: 20150821
  Serious: Yes (Other)
  Sender: FDA-Public Use
  Company Number: PHHY2015TR054409

PATIENT
  Age: 19 Year
  Sex: Male

DRUGS (1)
  1. BUPROPION [Suspect]
     Active Substance: BUPROPION
     Indication: MAJOR DEPRESSION
     Dosage: 150 MG/D
     Route: 065

REACTIONS (3)
  - Tic [Recovered/Resolved]
  - Dyskinesia [Recovered/Resolved]
  - Dysphonia [Recovered/Resolved]
